FAERS Safety Report 4579045-7 (Version None)
Quarter: 2005Q1

REPORT INFORMATION
  Report Type: 
  Country: None (occurrence: None)
  Receive Date: 20050211
  Receipt Date: 20050202
  Transmission Date: 20050727
  Serious: Yes (Hospitalization)
  Sender: FDA-Public Use
  Company Number: NO-MERCK-0502NOR00018

PATIENT
  Age: 75 Year
  Sex: Male

DRUGS (6)
  1. VIOXX [Suspect]
     Indication: PSORIATIC ARTHROPATHY
     Route: 048
     Dates: start: 20010205, end: 20041001
  2. METOPROLOL TARTRATE [Concomitant]
     Indication: CARDIAC DISORDER
     Route: 065
  3. AMLODIPINE BESYLATE [Concomitant]
     Indication: CARDIAC DISORDER
     Route: 065
  4. ASPIRIN AND MAGNESIUM OXIDE [Concomitant]
     Indication: CARDIAC DISORDER
     Route: 065
  5. CELECOXIB [Concomitant]
     Route: 048
     Dates: start: 20041001, end: 20041201
  6. ISOSORBIDE MONONITRATE [Concomitant]
     Indication: CARDIAC DISORDER
     Route: 065

REACTIONS (1)
  - CORONARY ARTERY ATHEROSCLEROSIS [None]
